FAERS Safety Report 14158717 (Version 1)
Quarter: 2017Q4

REPORT INFORMATION
  Report Type: Spontaneous
  Country: US (occurrence: US)
  Receive Date: 20171106
  Receipt Date: 20171106
  Transmission Date: 20180321
  Serious: Yes (Other)
  Sender: FDA-Public Use
  Company Number: US-ROCHE-2014040

PATIENT
  Age: 62 Year
  Sex: Male
  Weight: 74.91 kg

DRUGS (11)
  1. LAMICTAL [Concomitant]
     Active Substance: LAMOTRIGINE
     Route: 048
  2. POTASSIUM CLORAZEPATE [Concomitant]
     Active Substance: CLORAZEPATE DIPOTASSIUM
     Indication: NEPHROLITHIASIS
     Route: 048
  3. ALLOPURINOL. [Concomitant]
     Active Substance: ALLOPURINOL
     Indication: PROPHYLAXIS
     Route: 048
  4. XALKORI [Concomitant]
     Active Substance: CRIZOTINIB
     Dosage: 10 AM + AT 10 PM
     Route: 065
     Dates: start: 2017, end: 2017
  5. VALIUM [Suspect]
     Active Substance: DIAZEPAM
     Indication: EMOTIONAL DISTRESS
     Dosage: 1 TAB AT NIGHT, HALF IN THE MORNING,HALF IN THE MIDDLE OF THE DAY
     Route: 065
     Dates: start: 2016
  6. PANTOPRAZOLE [Concomitant]
     Active Substance: PANTOPRAZOLE
     Dosage: IN THE MORNING
     Route: 048
  7. CLOPIDOGREL [Concomitant]
     Active Substance: CLOPIDOGREL BISULFATE
     Dosage: STARTED TAKING 4 YEARS AGO
     Route: 048
  8. VALIUM [Suspect]
     Active Substance: DIAZEPAM
     Indication: CRYING
  9. CYMBALTA [Concomitant]
     Active Substance: DULOXETINE HYDROCHLORIDE
     Route: 065
  10. OPDIVO [Concomitant]
     Active Substance: NIVOLUMAB
  11. MACRODANTIN [Concomitant]
     Active Substance: NITROFURANTOIN
     Route: 065

REACTIONS (10)
  - Rash [Recovered/Resolved]
  - Blood pressure decreased [Recovered/Resolved]
  - Asthenia [Unknown]
  - Pneumonia [Unknown]
  - Fall [Unknown]
  - Rib fracture [Unknown]
  - Weight decreased [Unknown]
  - Streptococcal sepsis [Unknown]
  - Kidney infection [Unknown]
  - Blood potassium decreased [Recovered/Resolved]

NARRATIVE: CASE EVENT DATE: 2017
